FAERS Safety Report 16997739 (Version 4)
Quarter: 2019Q4

REPORT INFORMATION
  Report Type: Spontaneous
  Country: US (occurrence: US)
  Receive Date: 20191106
  Receipt Date: 20191220
  Transmission Date: 20200122
  Serious: No
  Sender: FDA-Public Use
  Company Number: US-TEVA-2019-US-1131628

PATIENT
  Age: 48 Year
  Sex: Male

DRUGS (1)
  1. SYNRIBO [Suspect]
     Active Substance: OMACETAXINE MEPESUCCINATE
     Indication: CHRONIC MYELOID LEUKAEMIA
     Dosage: DOSE: 2.4MG/0.69ML
     Route: 065
     Dates: start: 20191025

REACTIONS (6)
  - Increased appetite [Unknown]
  - Dry mouth [Unknown]
  - Nausea [Unknown]
  - Headache [Not Recovered/Not Resolved]
  - Rash [Unknown]
  - Fatigue [Unknown]

NARRATIVE: CASE EVENT DATE: 20191025
